FAERS Safety Report 24248943 (Version 1)
Quarter: 2024Q3

REPORT INFORMATION
  Report Type: Spontaneous
  Country: CN (occurrence: CN)
  Receive Date: 20240826
  Receipt Date: 20240826
  Transmission Date: 20241016
  Serious: Yes (Hospitalization)
  Sender: BAYER
  Company Number: CN-BAYER-2024A122025

PATIENT
  Age: 53 Year
  Sex: Male
  Weight: 66 kg

DRUGS (4)
  1. ULTRAVIST [Suspect]
     Active Substance: IOPROMIDE
     Indication: Angiogram
     Dosage: 12.47 G, ONCE
     Route: 041
     Dates: start: 20240722, end: 20240722
  2. IODIXANOL [Suspect]
     Active Substance: IODIXANOL
     Indication: Angiogram
     Dosage: 2 DF, QD
     Route: 041
     Dates: start: 20240722, end: 20240722
  3. SACUBITRIL\VALSARTAN [Suspect]
     Active Substance: SACUBITRIL\VALSARTAN
     Indication: Cardiomyopathy
     Dosage: 0.05 G, BID
     Route: 048
  4. SACUBITRIL\VALSARTAN [Suspect]
     Active Substance: SACUBITRIL\VALSARTAN
     Indication: Cardiomyopathy
     Dosage: 0.5 G, BID
     Route: 048
     Dates: start: 20240725, end: 20240814

REACTIONS (2)
  - Nephropathy toxic [Recovering/Resolving]
  - Renal failure [Recovering/Resolving]

NARRATIVE: CASE EVENT DATE: 20240814
